FAERS Safety Report 4918563-6 (Version None)
Quarter: 2006Q1

REPORT INFORMATION
  Report Type: 
  Country: None (occurrence: None)
  Receive Date: 20060221
  Receipt Date: 20060221
  Transmission Date: 20060701
  Serious: Yes (Death)
  Sender: FDA-Public Use
  Company Number: None

PATIENT
  Age: 67 Year
  Sex: Male

DRUGS (2)
  1. OLANZAPINE [Suspect]
     Dosage: 10 MG TID  PO
     Route: 048
  2. TRAZODONE HCL [Suspect]
     Dosage: 50 MG HS PO
     Route: 048

REACTIONS (11)
  - APNOEA [None]
  - BLOOD CREATINE PHOSPHOKINASE INCREASED [None]
  - DEPRESSED LEVEL OF CONSCIOUSNESS [None]
  - FALL [None]
  - HYPOXIA [None]
  - NEUROLEPTIC MALIGNANT SYNDROME [None]
  - OXYGEN SATURATION DECREASED [None]
  - PULMONARY EMBOLISM [None]
  - PYREXIA [None]
  - SEDATION [None]
  - VENTRICULAR TACHYCARDIA [None]
